FAERS Safety Report 23779328 (Version 2)
Quarter: 2024Q2

REPORT INFORMATION
  Report Type: Spontaneous
  Country: CY (occurrence: CY)
  Receive Date: 20240424
  Receipt Date: 20240607
  Transmission Date: 20240716
  Serious: Yes (Congenital Anomaly, Other)
  Sender: FDA-Public Use
  Company Number: CY-PERRIGO-23CY010997

PATIENT
  Sex: Male

DRUGS (1)
  1. ULIPRISTAL ACETATE [Suspect]
     Active Substance: ULIPRISTAL ACETATE
     Indication: Exposure during pregnancy
     Dosage: 1 DOSAGE FORM, SINGLE
     Route: 064
     Dates: start: 20221002, end: 20221002

REACTIONS (6)
  - Congenital cranial nerve paralysis [Not Recovered/Not Resolved]
  - Marcus Gunn syndrome [Not Recovered/Not Resolved]
  - Eyelid ptosis [Not Recovered/Not Resolved]
  - Infantile haemangioma [Not Recovered/Not Resolved]
  - Neonatal disorder [Not Recovered/Not Resolved]
  - Maternal exposure during pregnancy [Unknown]

NARRATIVE: CASE EVENT DATE: 20220101
